FAERS Safety Report 19083210 (Version 1)
Quarter: 2021Q2

REPORT INFORMATION
  Report Type: Spontaneous
  Country: CN (occurrence: CN)
  Receive Date: 20210401
  Receipt Date: 20210401
  Transmission Date: 20210717
  Serious: Yes (Other)
  Sender: FDA-Public Use
  Company Number: CN-PFIZER INC-2021326180

PATIENT
  Age: 43 Year
  Sex: Male

DRUGS (2)
  1. SODIUM CHLORIDE. [Concomitant]
     Active Substance: SODIUM CHLORIDE
     Indication: VEHICLE SOLUTION USE
     Dosage: 2 ML, WEEKLY(1X/7DAYS)
     Route: 058
     Dates: start: 20201123, end: 20210316
  2. METHOTREXATE. [Suspect]
     Active Substance: METHOTREXATE
     Indication: IMMUNOSUPPRESSION
     Dosage: 20 MG, WEEKLY (1X/7DAYS)
     Route: 058
     Dates: start: 20201123, end: 20210316

REACTIONS (3)
  - Incorrect route of product administration [Unknown]
  - Full blood count decreased [Recovering/Resolving]
  - Off label use [Unknown]

NARRATIVE: CASE EVENT DATE: 20201123
